FAERS Safety Report 5768014-7 (Version None)
Quarter: 2008Q2

REPORT INFORMATION
  Report Type: 
  Country: None (occurrence: None)
  Receive Date: 20080601
  Receipt Date: 20080124
  Transmission Date: 20081010
  Serious: Yes (Life-Threatening, Hospitalization)
  Sender: FDA-Public Use
  Company Number: US200801005547

PATIENT
  Age: 49 Year
  Sex: Female
  Weight: 81.2 kg

DRUGS (2)
  1. BYETTA [Suspect]
     Indication: BLOOD GLUCOSE INCREASED
     Dosage: EACH EVENING, SUBCUTANEOUS
     Route: 058
     Dates: start: 20071115, end: 20071126
  2. METFORMIN HCL [Concomitant]

REACTIONS (5)
  - HYPERSENSITIVITY [None]
  - OEDEMA [None]
  - RASH [None]
  - RESPIRATORY DISORDER [None]
  - URTICARIA [None]
